FAERS Safety Report 4649529-1 (Version None)
Quarter: 2005Q2

REPORT INFORMATION
  Report Type: 
  Country: None (occurrence: None)
  Receive Date: 20050427
  Receipt Date: 20050415
  Transmission Date: 20051028
  Serious: Yes (Hospitalization, Other)
  Sender: FDA-Public Use
  Company Number: 2005061611

PATIENT
  Age: 82 Year
  Sex: Female
  Weight: 62.5964 kg

DRUGS (5)
  1. ARTHROTEC [Suspect]
     Indication: MONARTHRITIS
     Dosage: 75/200 (1 IN 1 D), ORAL
     Route: 048
     Dates: start: 20000101
  2. AMLODIPINE BESYLATE [Concomitant]
  3. METOPROLOL TARTRATE [Concomitant]
  4. LOSARTAN POTASSIUM [Concomitant]
  5. LEVOTHYROXINE SODIUM [Concomitant]

REACTIONS (6)
  - FEELING ABNORMAL [None]
  - HEADACHE [None]
  - LYMPHOMA [None]
  - OESOPHAGEAL OBSTRUCTION [None]
  - POOR QUALITY DRUG ADMINISTERED [None]
  - TONGUE CANCER METASTATIC [None]
